FAERS Safety Report 9887899 (Version 1)
Quarter: 2014Q1

REPORT INFORMATION
  Report Type: Report from Study
  Country: US (occurrence: US)
  Receive Date: 20140211
  Receipt Date: 20140211
  Transmission Date: 20141002
  Serious: Yes (Other)
  Sender: FDA-Public Use
  Company Number: US-SANOFI-AVENTIS-2012SA068288

PATIENT
  Age: 43 Year
  Sex: Female
  Weight: 111.6 kg

DRUGS (17)
  1. TERIFLUNOMIDE [Suspect]
     Indication: MULTIPLE SCLEROSIS RELAPSE
     Route: 048
     Dates: start: 20120106
  2. AMBIEN [Concomitant]
     Indication: INSOMNIA
     Route: 048
     Dates: start: 2008
  3. TRAMADOL [Concomitant]
     Indication: PAIN
     Route: 048
     Dates: start: 20110411
  4. IBUPROFEN [Concomitant]
     Indication: PAIN
     Route: 048
     Dates: start: 20120107
  5. GABAPENTIN [Concomitant]
     Indication: PAIN
     Route: 048
     Dates: start: 201203
  6. CYCLOBENZAPRINE [Concomitant]
     Indication: BACK PAIN
     Route: 048
     Dates: start: 20120203
  7. DEXAMETHASONE [Concomitant]
     Indication: MULTIPLE SCLEROSIS RELAPSE
     Route: 042
     Dates: start: 20120719, end: 20120719
  8. DHE [Concomitant]
     Indication: MULTIPLE SCLEROSIS RELAPSE
     Route: 042
     Dates: start: 20120719, end: 20120719
  9. DIPHENHYDRAMINE HYDROCHLORIDE [Concomitant]
     Indication: ANAPHYLAXIS PROPHYLAXIS
     Route: 042
     Dates: start: 20120719, end: 20120719
  10. PEPCID [Concomitant]
     Indication: GASTROOESOPHAGEAL REFLUX DISEASE
     Route: 042
     Dates: start: 20120719, end: 20120719
  11. TORADOL [Concomitant]
     Indication: MULTIPLE SCLEROSIS RELAPSE
     Route: 042
     Dates: start: 20120719, end: 20120719
  12. METOCLOPRAMIDE [Concomitant]
     Indication: PROPHYLAXIS OF NAUSEA AND VOMITING
     Route: 042
     Dates: start: 20120719, end: 20120719
  13. MORPHINE [Concomitant]
     Indication: MULTIPLE SCLEROSIS RELAPSE
     Route: 042
     Dates: start: 20120719, end: 20120719
  14. DIVALPROEX SODIUM [Concomitant]
     Indication: MIGRAINE
     Route: 048
     Dates: start: 20120703, end: 20120723
  15. DIVALPROEX SODIUM [Concomitant]
     Indication: MIGRAINE
     Route: 048
     Dates: start: 20120724, end: 20120727
  16. FIORICET [Concomitant]
     Indication: MIGRAINE
     Dosage: DOSE:1 UNIT(S)
     Route: 048
     Dates: start: 20120723
  17. OXYCODONE [Concomitant]
     Indication: PAIN
     Route: 048
     Dates: start: 201207

REACTIONS (1)
  - Suicidal behaviour [Recovered/Resolved]
